FAERS Safety Report 7396606-0 (Version None)
Quarter: 2011Q2

REPORT INFORMATION
  Report Type: 
  Country: None (occurrence: None)
  Receive Date: 20110406
  Receipt Date: 20110323
  Transmission Date: 20111010
  Serious: Yes (Hospitalization)
  Sender: FDA-Public Use
  Company Number: PHHO2011US04449

PATIENT
  Sex: Female
  Weight: 61 kg

DRUGS (6)
  1. GILENYA [Suspect]
     Dosage: DOSE BLINDED
     Route: 048
     Dates: start: 20070606, end: 20091214
  2. GILENYA [Suspect]
     Dosage: 0.5 MG, QD
     Route: 048
     Dates: start: 20091215, end: 20110304
  3. GILENYA [Suspect]
     Dosage: NO TREATMENT
     Dates: start: 20110305, end: 20110306
  4. NAUSETRON [Concomitant]
     Indication: NAUSEA
     Dosage: UNK
     Dates: start: 20100201, end: 20100503
  5. COLACE [Concomitant]
     Indication: ABDOMINAL PAIN
     Dosage: UNK
     Dates: start: 20081016
  6. GILENYA [Suspect]
     Dosage: 0.5 MG, QD
     Route: 048
     Dates: start: 20110307

REACTIONS (5)
  - GASTRITIS VIRAL [None]
  - LYMPHOCYTE COUNT DECREASED [None]
  - ABDOMINAL PAIN [None]
  - NAUSEA [None]
  - DIARRHOEA [None]
